FAERS Safety Report 7964559-X (Version None)
Quarter: 2011Q4

REPORT INFORMATION
  Report Type: 
  Country: None (occurrence: None)
  Receive Date: 20111208
  Receipt Date: 20111202
  Transmission Date: 20120403
  Serious: Yes (Death, Life-Threatening, Hospitalization, Disabling)
  Sender: FDA-Public Use
  Company Number: PHHY2011JP91961

PATIENT
  Sex: Male
  Weight: 82 kg

DRUGS (32)
  1. RISPERDAL [Concomitant]
     Dosage: 10 MG, UNK
     Route: 048
  2. PROMETHAZINE HCL [Concomitant]
     Indication: SCHIZOPHRENIA
     Dosage: 50 MG, UNK
     Route: 048
     Dates: start: 20070628
  3. PHENOBARBITAL TAB [Concomitant]
     Indication: SCHIZOPHRENIA
     Dosage: 80 MG, UNK
     Route: 048
     Dates: start: 20070620, end: 20070628
  4. SLOWHEIM [Concomitant]
     Indication: SCHIZOPHRENIA
     Dosage: 15 MG, UNK
     Route: 048
     Dates: start: 20070628
  5. LODOPIN [Concomitant]
     Indication: SCHIZOPHRENIA
     Dosage: 200 MG, UNK
     Route: 048
     Dates: start: 20070625, end: 20070628
  6. DEPAS [Concomitant]
     Dosage: 0.5 MG, UNK
     Route: 048
  7. HALOPERIDOL [Suspect]
     Indication: SCHIZOPHRENIA
     Dosage: 30 MG, UNK
     Route: 042
     Dates: start: 20070620, end: 20070928
  8. RISPERDAL [Concomitant]
     Indication: SCHIZOPHRENIA
     Dosage: 4 MG, UNK
     Route: 048
     Dates: start: 20070628
  9. SEROQUEL [Concomitant]
     Indication: SCHIZOPHRENIA
     Dosage: 100 MG, UNK
     Route: 048
     Dates: start: 20070628
  10. CLARITHROMYCIN [Concomitant]
     Indication: PNEUMONIA
     Dosage: 600 MG, UNK
     Route: 048
     Dates: start: 20070622, end: 20070728
  11. NITRAZEPAM [Concomitant]
     Indication: INSOMNIA
     Dosage: 15 MG, UNK
     Route: 048
     Dates: start: 20070628
  12. NITRAZEPAM [Concomitant]
     Dosage: 1 G, UNK
     Route: 048
  13. LEVOTOMIN [Concomitant]
     Indication: SCHIZOPHRENIA
     Dosage: 50 MG, UNK
     Route: 042
     Dates: start: 20070628
  14. SENNOSIDE [Concomitant]
     Indication: CONSTIPATION
     Dosage: 12 MG, UNK
     Route: 048
     Dates: start: 20070626
  15. MAGNESIUM SULFATE [Concomitant]
     Indication: CONSTIPATION
     Dosage: 250 MG, UNK
     Route: 048
     Dates: start: 20070626
  16. LUVOX [Concomitant]
     Dosage: 100 MG, UNK
  17. PROMAZINE HYDROCHLORIDE [Concomitant]
     Indication: SCHIZOPHRENIA
     Dosage: 150 MG, UNK
     Route: 048
     Dates: start: 20070623, end: 20070628
  18. SLOWHEIM [Concomitant]
     Dosage: 10 MG, UNK
     Route: 048
  19. LAXOBERON [Concomitant]
     Indication: CONSTIPATION
     Dosage: UNK
     Route: 048
     Dates: start: 20070626
  20. RILMAZAFONE [Concomitant]
     Dosage: 1 MG, UNK
     Route: 048
  21. TEGRETOL [Suspect]
     Indication: SCHIZOPHRENIA
     Dosage: 1200 UNK, UNK
     Route: 048
     Dates: start: 20070620, end: 20070928
  22. AKINETON [Concomitant]
     Dosage: 3 MG, UNK
  23. TIMIPERONE [Concomitant]
     Indication: SCHIZOPHRENIA
     Dosage: 25 MG, UNK
     Route: 048
     Dates: start: 20070619, end: 20070628
  24. SOFMIN [Concomitant]
     Indication: SCHIZOPHRENIA
     Dosage: 60 MG, UNK
     Route: 048
     Dates: start: 20070619, end: 20070628
  25. ZYPREXA [Concomitant]
     Indication: SCHIZOPHRENIA
     Dosage: UNK
     Route: 048
     Dates: start: 20070619, end: 20070628
  26. DORAL [Concomitant]
     Indication: SCHIZOPHRENIA
     Dosage: 20 MG, UNK
     Route: 048
     Dates: start: 20070627, end: 20070628
  27. TOLOPELON [Concomitant]
     Indication: SCHIZOPHRENIA
     Dosage: 24 MG, UNK
     Route: 042
     Dates: start: 20070619, end: 20070628
  28. ALPRAZOLAM [Concomitant]
     Route: 048
  29. PROMETHAZINE HCL [Concomitant]
     Dosage: 210 MG, UNK
     Route: 048
  30. VALPROIC ACID [Concomitant]
     Indication: SCHIZOPHRENIA
     Dosage: 600 MG, UNK
     Route: 048
     Dates: start: 20070625, end: 20070628
  31. PANTOSIN [Concomitant]
     Indication: CONSTIPATION
     Dosage: 600 MG, UNK
     Route: 048
     Dates: start: 20070626
  32. MUCOTRON [Concomitant]
     Indication: PNEUMONIA
     Dosage: 750 MG, UNK
     Route: 048
     Dates: start: 20070622

REACTIONS (17)
  - APALLIC SYNDROME [None]
  - NAUSEA [None]
  - RESPIRATORY DEPRESSION [None]
  - INTESTINAL DILATATION [None]
  - DIZZINESS [None]
  - CARDIO-RESPIRATORY ARREST [None]
  - SEPSIS [None]
  - PNEUMONIA [None]
  - POSTRESUSCITATION ENCEPHALOPATHY [None]
  - PYREXIA [None]
  - BLOOD CREATINE PHOSPHOKINASE INCREASED [None]
  - INTESTINAL OBSTRUCTION [None]
  - ILEUS PARALYTIC [None]
  - GASTROINTESTINAL OEDEMA [None]
  - DEFAECATION URGENCY [None]
  - FAECES HARD [None]
  - ABNORMAL FAECES [None]
